FAERS Safety Report 19968078 (Version 2)
Quarter: 2021Q4

REPORT INFORMATION
  Report Type: Other
  Country: US (occurrence: None)
  Receive Date: 20211019
  Receipt Date: 20211118
  Transmission Date: 20220304
  Serious: Yes (Hospitalization)
  Sender: FDA-Public Use
  Company Number: US-ROCHE-2930744

PATIENT
  Sex: Male

DRUGS (1)
  1. OCREVUS [Suspect]
     Active Substance: OCRELIZUMAB
     Indication: Multiple sclerosis
     Dosage: 2021/03/10, 2020/07/27, 2020/01/31, 2019/07/18, 2019/08/01
     Route: 065
     Dates: start: 20190718

REACTIONS (5)
  - Urinary tract infection [Unknown]
  - Sepsis [Unknown]
  - Gastrointestinal disorder [Unknown]
  - Organ failure [Recovered/Resolved]
  - Bedridden [Not Recovered/Not Resolved]
